FAERS Safety Report 9473754 (Version 2)
Quarter: 2013Q3

REPORT INFORMATION
  Report Type: Spontaneous
  Country: US (occurrence: US)
  Receive Date: 20130823
  Receipt Date: 20130823
  Transmission Date: 20140515
  Serious: Yes (Death, Hospitalization, Other)
  Sender: FDA-Public Use
  Company Number: US-BRISTOL-MYERS SQUIBB COMPANY-16955593

PATIENT
  Age: 71 Year
  Sex: Male

DRUGS (10)
  1. SPRYCEL [Suspect]
     Indication: ACUTE LYMPHOCYTIC LEUKAEMIA
     Route: 048
     Dates: start: 20120531
  2. ACYCLOVIR [Concomitant]
  3. ATENOL [Concomitant]
  4. AVODART [Concomitant]
  5. POTASSIUM [Concomitant]
  6. PRILOSEC [Concomitant]
  7. RAPAFLO [Concomitant]
  8. SERTRALINE [Concomitant]
  9. VITAMIN D [Concomitant]
  10. ZOFRAN [Concomitant]

REACTIONS (6)
  - Cardiac arrest [Fatal]
  - Bacteraemia [Recovered/Resolved]
  - Pyrexia [Recovered/Resolved]
  - Diarrhoea [Unknown]
  - Asthenia [Unknown]
  - Dyspnoea [Unknown]
